FAERS Safety Report 23713280 (Version 3)
Quarter: 2024Q4

REPORT INFORMATION
  Report Type: Report from Study
  Country: KR (occurrence: KR)
  Receive Date: 20240405
  Receipt Date: 20241104
  Transmission Date: 20250114
  Serious: Yes (Death, Life-Threatening, Hospitalization)
  Sender: JOHNSON AND JOHNSON
  Company Number: KR-JNJFOC-20231238423

PATIENT
  Age: 75 Year
  Sex: Male
  Weight: 55.6 kg

DRUGS (49)
  1. ERLEADA [Suspect]
     Active Substance: APALUTAMIDE
     Indication: Hormone-dependent prostate cancer
     Route: 048
     Dates: start: 20230817, end: 20231108
  2. TOPISOL [METHYLPREDNISOLONE ACEPONATE] [Concomitant]
     Indication: Rash
     Route: 062
     Dates: start: 20230817
  3. ALLEGRA [Concomitant]
     Active Substance: FEXOFENADINE HYDROCHLORIDE
     Indication: Rash
     Route: 048
     Dates: start: 20230817
  4. XGEVA [Concomitant]
     Active Substance: DENOSUMAB
     Indication: Hormone-dependent prostate cancer
     Route: 058
     Dates: start: 20230817
  5. OXYCODONE [Concomitant]
     Active Substance: OXYCODONE
     Indication: Hormone-dependent prostate cancer
     Route: 048
     Dates: start: 20230821, end: 20230827
  6. CALCIUM CARBONATE [Concomitant]
     Active Substance: CALCIUM CARBONATE
     Indication: Hormone-dependent prostate cancer
     Route: 048
     Dates: start: 20230821, end: 20230827
  7. ASIDOL [Concomitant]
     Indication: Hormone-dependent prostate cancer
     Route: 048
     Dates: start: 20230914, end: 20231203
  8. TAZOPERAN [Concomitant]
     Indication: Proctitis
     Route: 042
     Dates: start: 20231130, end: 20231130
  9. TAZOPERAN [Concomitant]
     Route: 042
     Dates: start: 20231201, end: 20231201
  10. PLASMA SOLUTION A [Concomitant]
     Indication: Dehydration
     Route: 042
     Dates: start: 20231130, end: 20231130
  11. SODIUM CHLORIDE [Concomitant]
     Active Substance: SODIUM CHLORIDE
     Route: 042
     Dates: start: 20231212
  12. LIDOCAINE [Concomitant]
     Active Substance: LIDOCAINE
     Indication: Biopsy skin
     Dates: start: 20231130, end: 20231130
  13. BEAROBAN [Concomitant]
     Indication: Infection prophylaxis
     Route: 062
     Dates: start: 20231130, end: 20231130
  14. LEVOFLOXACIN [Concomitant]
     Active Substance: LEVOFLOXACIN
     Indication: Proctitis
     Route: 042
     Dates: start: 20231201, end: 20231204
  15. CEFTRIAXONE SODIUM [Concomitant]
     Active Substance: CEFTRIAXONE SODIUM
     Indication: Proctitis
     Route: 042
     Dates: start: 20231205, end: 20231206
  16. SULFAMETHOXAZOLE\TRIMETHOPRIM [Concomitant]
     Active Substance: SULFAMETHOXAZOLE\TRIMETHOPRIM
     Indication: Pneumocystis jirovecii pneumonia
     Dosage: 10 TAB
     Route: 048
     Dates: start: 20231205, end: 20231206
  17. SULFAMETHOXAZOLE\TRIMETHOPRIM [Concomitant]
     Active Substance: SULFAMETHOXAZOLE\TRIMETHOPRIM
     Dosage: 20 TABLETS
     Route: 048
     Dates: start: 20231205, end: 20231206
  18. SULFAMETHOXAZOLE\TRIMETHOPRIM [Concomitant]
     Active Substance: SULFAMETHOXAZOLE\TRIMETHOPRIM
     Dosage: 15 TABLETS
     Route: 048
     Dates: start: 20231207, end: 20231207
  19. SULFAMETHOXAZOLE\TRIMETHOPRIM [Concomitant]
     Active Substance: SULFAMETHOXAZOLE\TRIMETHOPRIM
     Route: 048
     Dates: start: 20231208
  20. ZITHROMAX [Concomitant]
     Active Substance: AZITHROMYCIN DIHYDRATE
     Indication: Pneumocystis jirovecii pneumonia
     Route: 048
     Dates: start: 20231205, end: 20231206
  21. TAZOPERAN [Concomitant]
     Indication: Pneumocystis jirovecii pneumonia
     Route: 042
     Dates: start: 20231206
  22. LEVOFLOXACIN [Concomitant]
     Active Substance: LEVOFLOXACIN
     Indication: Pneumocystis jirovecii pneumonia
     Route: 042
     Dates: start: 20231206, end: 20231211
  23. GAVIR [Concomitant]
     Indication: Pneumocystis jirovecii pneumonia
     Route: 042
     Dates: start: 20231206
  24. ONEFLU [Concomitant]
     Indication: Pneumocystis jirovecii pneumonia
     Route: 042
     Dates: start: 20231206, end: 20231212
  25. TAICONIN [Concomitant]
     Indication: Pneumocystis jirovecii pneumonia
     Route: 042
     Dates: start: 20231213
  26. TAPSIN [Concomitant]
     Indication: Pneumocystis jirovecii pneumonia
     Route: 042
     Dates: start: 20231214
  27. MIDAZOLAM [Concomitant]
     Active Substance: MIDAZOLAM
     Indication: Sedation
     Route: 042
     Dates: start: 20231208
  28. FRESOFOL MCT [Concomitant]
     Indication: Sedation
     Route: 042
     Dates: start: 20231206
  29. ULTIAN [Concomitant]
     Indication: Sedation
     Route: 042
     Dates: start: 20231206
  30. ETOMIDATE [Concomitant]
     Active Substance: ETOMIDATE
     Indication: Endotracheal intubation
     Route: 042
     Dates: start: 20231206, end: 20231206
  31. ROCUMERON [Concomitant]
     Indication: Endotracheal intubation
     Route: 042
     Dates: start: 20231206, end: 20231206
  32. ENOXAPARIN SODIUM [Concomitant]
     Active Substance: ENOXAPARIN SODIUM
     Indication: Thrombosis prophylaxis
     Route: 058
     Dates: start: 20231206
  33. COMBIFLEX [ALANINE;ARGININE;CALCIUM HYDROXIDE;GLUCOSE MONOHYDRATE;GLYC [Concomitant]
     Indication: Malnutrition
     Route: 042
     Dates: start: 20231206
  34. FURTMAN [Concomitant]
     Indication: Mineral supplementation
     Route: 042
     Dates: start: 20231206
  35. FURTMAN [Concomitant]
     Indication: Electrolyte imbalance
  36. VITAMINS [Concomitant]
     Active Substance: VITAMINS
     Indication: Vitamin supplementation
     Route: 042
     Dates: start: 20231206
  37. FREAMINE [ALANINE;ARGININE;CYSTEINE HYDROCHLORIDE;GLYCINE;HISTIDINE;IS [Concomitant]
     Indication: Nutritional supplementation
     Route: 042
     Dates: start: 20231206
  38. FREAMINE [ALANINE;ARGININE;CYSTEINE HYDROCHLORIDE;GLYCINE;HISTIDINE;IS [Concomitant]
     Indication: Malnutrition
  39. AMINO ACIDS\DEXTROSE\ELECTROLYTES NOS\SOYBEAN OIL [Concomitant]
     Active Substance: AMINO ACIDS\DEXTROSE\ELECTROLYTES NOS\SOYBEAN OIL
     Indication: Nutritional supplementation
     Route: 042
     Dates: start: 20231207, end: 20231210
  40. DULACKHAN EASY [Concomitant]
     Indication: Prophylaxis
     Route: 048
     Dates: start: 20231202
  41. CALCIUM POLYCARBOPHIL [Concomitant]
     Active Substance: CALCIUM POLYCARBOPHIL
     Indication: Prophylaxis
     Route: 048
     Dates: start: 20231204
  42. ONEALFA [Concomitant]
     Active Substance: ALFACALCIDOL
     Indication: Hormone-dependent prostate cancer
     Route: 048
     Dates: start: 20231204
  43. CALCIUM POLYSTYRENE SULFONATE [Concomitant]
     Active Substance: CALCIUM POLYSTYRENE SULFONATE
     Indication: Hyperglycaemia
     Route: 048
     Dates: start: 20231209
  44. CALCIUM POLYSTYRENE SULFONATE [Concomitant]
     Active Substance: CALCIUM POLYSTYRENE SULFONATE
     Route: 048
     Dates: start: 20231212
  45. KASKA [Concomitant]
     Indication: Hyperglycaemia
     Route: 048
     Dates: start: 20231213
  46. PHOSTEN [Concomitant]
     Indication: Hyperglycaemia
     Route: 042
     Dates: start: 20231207, end: 20231208
  47. MUCOMYST [Concomitant]
     Active Substance: ACETYLCYSTEINE
     Indication: Pneumocystis jirovecii pneumonia
     Dates: start: 20231205, end: 20231206
  48. VECARON [Concomitant]
     Indication: Prophylaxis
     Route: 042
     Dates: start: 20231209
  49. ALFACALCIDOL [Concomitant]
     Active Substance: ALFACALCIDOL
     Indication: Hormone-dependent prostate cancer
     Route: 048
     Dates: start: 20231204

REACTIONS (7)
  - Pneumocystis jirovecii pneumonia [Fatal]
  - Drug reaction with eosinophilia and systemic symptoms [Not Recovered/Not Resolved]
  - Proctitis [Not Recovered/Not Resolved]
  - Constipation [Recovered/Resolved]
  - Hypotension [Not Recovered/Not Resolved]
  - Hypoalbuminaemia [Not Recovered/Not Resolved]
  - Hyperglycaemia [Not Recovered/Not Resolved]

NARRATIVE: CASE EVENT DATE: 20231122
